FAERS Safety Report 5072041-5 (Version None)
Quarter: 2006Q3

REPORT INFORMATION
  Report Type: 
  Country: None (occurrence: None)
  Receive Date: 20060807
  Receipt Date: 20060802
  Transmission Date: 20061208
  Serious: Yes (Hospitalization)
  Sender: FDA-Public Use
  Company Number: DE-AVENTIS-200612282DE

PATIENT
  Sex: Female

DRUGS (3)
  1. TAXOTERE [Suspect]
     Dosage: FREQUENCY: CYCLICALLY
     Route: 042
     Dates: start: 20060720, end: 20060720
  2. ADRIAMYCIN PFS [Suspect]
     Dosage: FREQUENCY: CYCLICALLY
     Route: 042
     Dates: start: 20060720, end: 20060720
  3. CYCLOPHOSPHAMIDE [Suspect]
     Dosage: FREQUENCY: CYCLICALLY
     Route: 042
     Dates: start: 20060720, end: 20060720

REACTIONS (3)
  - LEUKOPENIA [None]
  - NEUTROPENIA [None]
  - ORAL CANDIDIASIS [None]
